FAERS Safety Report 15159244 (Version 4)
Quarter: 2020Q3

REPORT INFORMATION
  Report Type: Spontaneous
  Country: JP (occurrence: JP)
  Receive Date: 20180718
  Receipt Date: 20181009
  Transmission Date: 20201104
  Serious: Yes (Other)
  Sender: FDA-Public Use
  Company Number: JP-BRISTOL-MYERS SQUIBB COMPANY-BMS-2018-066457

PATIENT
  Age: 48 Year
  Sex: Female

DRUGS (2)
  1. ALECTINIB. [Suspect]
     Active Substance: ALECTINIB
     Indication: NON-SMALL CELL LUNG CANCER
     Route: 065
  2. OPDIVO [Suspect]
     Active Substance: NIVOLUMAB
     Indication: NON-SMALL CELL LUNG CANCER
     Dosage: UNK
     Route: 041

REACTIONS (5)
  - Drug reaction with eosinophilia and systemic symptoms [Unknown]
  - Angular cheilitis [Unknown]
  - Cytopenia [Unknown]
  - Liver disorder [Unknown]
  - Erythema multiforme [Unknown]
